FAERS Safety Report 5052400-7 (Version None)
Quarter: 2006Q3

REPORT INFORMATION
  Report Type: 
  Country: None (occurrence: None)
  Receive Date: 20060717
  Receipt Date: 20060705
  Transmission Date: 20061208
  Serious: Yes (Other)
  Sender: FDA-Public Use
  Company Number: PHRM2006FR02010

PATIENT
  Age: 86 Year
  Sex: Male

DRUGS (2)
  1. BLOOD CELLS, PACKED HUMAN [Concomitant]
     Indication: BONE MARROW FAILURE
     Dosage: 2 UNITS/DAY FOR 2 DAYS EVERY 3 WEEKS
  2. DESFERAL [Suspect]
     Indication: SERUM FERRITIN INCREASED
     Dates: start: 20060628

REACTIONS (3)
  - HAEMOGLOBIN DECREASED [None]
  - NEUTROPHIL COUNT DECREASED [None]
  - RED BLOOD CELL COUNT DECREASED [None]
